FAERS Safety Report 4275824-4 (Version None)
Quarter: 2004Q1

REPORT INFORMATION
  Report Type: 
  Country: None (occurrence: None)
  Receive Date: 20040116
  Receipt Date: 20040106
  Transmission Date: 20041129
  Serious: Yes (Other)
  Sender: FDA-Public Use
  Company Number: NSADSS2003006619

PATIENT
  Age: 75 Year
  Sex: Female
  Weight: 60.3284 kg

DRUGS (14)
  1. REMICADE [Suspect]
     Indication: RHEUMATOID ARTHRITIS
     Dosage: SEE IMAGE
     Route: 041
     Dates: start: 19121016
  2. REMICADE [Suspect]
     Indication: RHEUMATOID ARTHRITIS
     Dosage: SEE IMAGE
     Route: 041
     Dates: start: 20020926
  3. REMICADE [Suspect]
     Indication: RHEUMATOID ARTHRITIS
     Dosage: SEE IMAGE
     Route: 041
     Dates: start: 20021114
  4. REMICADE [Suspect]
     Indication: RHEUMATOID ARTHRITIS
     Dosage: SEE IMAGE
     Route: 041
     Dates: start: 20030116
  5. AMIODARONE HCL [Concomitant]
  6. PROCARDIA [Concomitant]
  7. PREDNISONE [Concomitant]
  8. ZESTRIL [Concomitant]
  9. AMBIEN [Concomitant]
  10. TYLENOL [Concomitant]
  11. COUMADIN [Concomitant]
  12. FOSAMAX [Concomitant]
  13. XANAX [Concomitant]
  14. LIPITOR [Concomitant]

REACTIONS (4)
  - INFECTION [None]
  - KERATOACANTHOMA [None]
  - SQUAMOUS CELL CARCINOMA [None]
  - TACHYCARDIA [None]
